FAERS Safety Report 21189730 (Version 2)
Quarter: 2022Q3

REPORT INFORMATION
  Report Type: Spontaneous
  Country: US (occurrence: US)
  Receive Date: 20220809
  Receipt Date: 20220816
  Transmission Date: 20221027
  Serious: No
  Sender: FDA-Public Use
  Company Number: US-JNJFOC-20220805443

PATIENT
  Sex: Female

DRUGS (1)
  1. TYLENOL 8 HR ARTHRITIS PAIN [Suspect]
     Active Substance: ACETAMINOPHEN
     Indication: Pain management
     Dosage: ONE CAPLET ONCE ONLY
     Route: 065
     Dates: start: 20220801

REACTIONS (2)
  - Insomnia [Unknown]
  - Incorrect dose administered [Unknown]
